FAERS Safety Report 16980893 (Version 2)
Quarter: 2020Q1

REPORT INFORMATION
  Report Type: Spontaneous
  Country: US (occurrence: US)
  Receive Date: 20191031
  Receipt Date: 20200310
  Transmission Date: 20200409
  Serious: No
  Sender: FDA-Public Use
  Company Number: US-FARMAPROD-201909-1444

PATIENT
  Sex: Female

DRUGS (7)
  1. OFLOXACIN. [Concomitant]
     Active Substance: OFLOXACIN
     Indication: CORNEAL TRANSPLANT
     Route: 047
     Dates: start: 20190103
  2. BRIMONIDINE [Concomitant]
     Active Substance: BRIMONIDINE TARTRATE
     Indication: OPEN ANGLE GLAUCOMA
     Route: 047
     Dates: start: 2018
  3. OFLOXACIN. [Concomitant]
     Active Substance: OFLOXACIN
     Indication: CORNEAL ABRASION
  4. PRED FORTE [Concomitant]
     Active Substance: PREDNISOLONE ACETATE
     Indication: CORNEAL TRANSPLANT
     Route: 047
     Dates: start: 20190103
  5. OXERVATE [Suspect]
     Active Substance: CENEGERMIN-BKBJ
     Indication: NEUROTROPHIC KERATOPATHY
     Route: 047
     Dates: start: 20190906
  6. RETAINE [Concomitant]
     Active Substance: HYPROMELLOSE 2910 (4000 MPA.S)
     Indication: KERATITIS
     Route: 047
     Dates: start: 20190318
  7. AZOPT [Concomitant]
     Active Substance: BRINZOLAMIDE
     Indication: OPEN ANGLE GLAUCOMA
     Route: 047
     Dates: start: 2018

REACTIONS (3)
  - Eyelid irritation [Unknown]
  - Drug ineffective [Unknown]
  - Eye pain [Unknown]
